FAERS Safety Report 15301066 (Version 1)
Quarter: 2020Q3

REPORT INFORMATION
  Report Type: Report from Study
  Country: DE (occurrence: DE)
  Receive Date: 20180821
  Receipt Date: 20180821
  Transmission Date: 20201105
  Serious: Yes (Hospitalization)
  Sender: FDA-Public Use
  Company Number: DE-JNJFOC-20170405370

PATIENT
  Age: 51 Year
  Sex: Female
  Weight: 68 kg

DRUGS (11)
  1. DEKRISTOL [Concomitant]
     Active Substance: CHOLECALCIFEROL
     Indication: OSTEOPOROSIS
     Route: 048
     Dates: start: 2014
  2. PREDNISOLONE. [Concomitant]
     Active Substance: PREDNISOLONE
     Route: 048
     Dates: start: 20161216
  3. USTEKINUMAB [Suspect]
     Active Substance: USTEKINUMAB
     Route: 058
  4. USTEKINUMAB [Suspect]
     Active Substance: USTEKINUMAB
     Indication: COLITIS ULCERATIVE
     Route: 058
     Dates: start: 20160711
  5. MESALAZINE [Concomitant]
     Active Substance: MESALAMINE
     Route: 048
     Dates: start: 201512
  6. AZATHIOPRIN [Concomitant]
     Active Substance: AZATHIOPRINE
     Route: 048
     Dates: start: 201604
  7. IDEOS [Concomitant]
     Active Substance: CALCIUM CARBONATE\CHOLECALCIFEROL
     Indication: OSTEOPOROSIS
     Route: 048
     Dates: start: 2013
  8. HUMIRA [Concomitant]
     Active Substance: ADALIMUMAB
     Indication: COLITIS ULCERATIVE
     Route: 058
     Dates: start: 20161130, end: 20170214
  9. LORMETAZEPAM [Concomitant]
     Active Substance: LORMETAZEPAM
     Indication: SLEEP DISORDER THERAPY
     Route: 048
     Dates: start: 20170215
  10. LIDOCAINE. [Concomitant]
     Active Substance: LIDOCAINE
     Route: 054
     Dates: start: 20160711, end: 20160908
  11. NOVAMINSULFON [Concomitant]
     Active Substance: METAMIZOLE
     Indication: ABDOMINAL PAIN
     Route: 048
     Dates: start: 2010

REACTIONS (1)
  - Cytomegalovirus colitis [Recovered/Resolved]

NARRATIVE: CASE EVENT DATE: 20170215
